FAERS Safety Report 8440270-6 (Version None)
Quarter: 2012Q2

REPORT INFORMATION
  Report Type: 
  Country: None (occurrence: None)
  Receive Date: 20120615
  Receipt Date: 20120612
  Transmission Date: 20120825
  Serious: Yes (Other)
  Sender: FDA-Public Use
  Company Number: US-PFIZER INC-2012142028

PATIENT
  Sex: Female
  Weight: 77.098 kg

DRUGS (8)
  1. EFFEXOR XR [Suspect]
     Indication: CHRONIC FATIGUE SYNDROME
     Dosage: 300 MG, DAILY
     Route: 048
  2. NORCO [Concomitant]
     Indication: PAIN
     Dosage: 20 MG/650 MG, 3X/DAY
  3. DOXEPIN [Concomitant]
     Indication: DEPRESSION
     Dosage: 100 MG, DAILY
  4. KEFLEX [Concomitant]
     Indication: INFECTION
     Dosage: 500 MG, 4X/DAY
  5. EFFEXOR XR [Suspect]
     Indication: DEPRESSION
     Dosage: UNK
     Route: 048
     Dates: start: 19990101
  6. MORPHINE [Concomitant]
     Indication: PAIN
     Dosage: 120MG TWO TIMES A DAY AND 15MG DAILY
  7. ADDERALL 5 [Concomitant]
     Indication: CHRONIC FATIGUE SYNDROME
     Dosage: 40 MG, DAILY
  8. PRILOSEC [Suspect]
     Indication: GASTROOESOPHAGEAL REFLUX DISEASE
     Dosage: 20 MG, AS NEEDED

REACTIONS (4)
  - HAEMATEMESIS [None]
  - RETINAL DISORDER [None]
  - BLINDNESS [None]
  - VOMITING [None]
